FAERS Safety Report 10162419 (Version 1)
Quarter: 2014Q2

REPORT INFORMATION
  Report Type: Spontaneous
  Country: US (occurrence: US)
  Receive Date: 20140509
  Receipt Date: 20140509
  Transmission Date: 20141212
  Serious: No
  Sender: FDA-Public Use
  Company Number: US-GLAXOSMITHKLINE-A1022664A

PATIENT
  Sex: Female

DRUGS (5)
  1. BACTROBAN [Suspect]
     Indication: RHINITIS
     Route: 045
  2. AMBIEN [Concomitant]
  3. MELOXICAM [Concomitant]
  4. MIRAPEX [Concomitant]
  5. SERTRALINE [Concomitant]

REACTIONS (1)
  - Nasal discomfort [Recovering/Resolving]
